FAERS Safety Report 4566770-7 (Version None)
Quarter: 2005Q1

REPORT INFORMATION
  Report Type: 
  Country: None (occurrence: None)
  Receive Date: 20050201
  Receipt Date: 20011016
  Transmission Date: 20050727
  Serious: Yes (Other)
  Sender: FDA-Public Use
  Company Number: US-BRISTOL-MYERS SQUIBB COMPANY-11533502

PATIENT
  Age: 40 Year
  Sex: Female

DRUGS (12)
  1. STADOL [Suspect]
     Indication: HEADACHE
     Route: 045
     Dates: start: 19981120
  2. STADOL [Suspect]
     Indication: HEADACHE
     Route: 030
  3. ALPRAZOLAM [Concomitant]
  4. CARISOPRODOL [Concomitant]
  5. HYDROCODONE + ACETAMINOPHEN [Concomitant]
  6. PROMETHAZINE [Concomitant]
  7. OXYCONTIN [Concomitant]
  8. NEURONTIN [Concomitant]
  9. METHYLPREDNISOLONE [Concomitant]
  10. DEPAKOTE [Concomitant]
  11. HYDROXYZINE [Concomitant]
  12. DIAZEPAM [Concomitant]

REACTIONS (2)
  - DEPENDENCE [None]
  - DRUG WITHDRAWAL SYNDROME [None]
